FAERS Safety Report 4877469-1 (Version None)
Quarter: 2006Q1

REPORT INFORMATION
  Report Type: 
  Country: None (occurrence: None)
  Receive Date: 20060109
  Receipt Date: 20051227
  Transmission Date: 20060701
  Serious: Yes (Disabling, Other)
  Sender: FDA-Public Use
  Company Number: 2005JP002264

PATIENT
  Age: 12 Year
  Sex: Female
  Weight: 54.1 kg

DRUGS (2)
  1. PROGRAF [Suspect]
     Indication: BONE MARROW TRANSPLANT
     Dosage: 0.02 MG/KG, UID/QD, IV DRIP
     Route: 041
     Dates: start: 20040602, end: 20040814
  2. METHYLPREDNISOLONE [Suspect]
     Indication: BONE MARROW TRANSPLANT
     Dosage: 1 MG/KG, UID/QD, IV BOLUS
     Route: 040
     Dates: start: 20040602

REACTIONS (14)
  - COMPLICATIONS OF TRANSPLANT SURGERY [None]
  - CYTOMEGALOVIRUS INFECTION [None]
  - DIARRHOEA [None]
  - DRUG INEFFECTIVE [None]
  - DRUG TOXICITY [None]
  - ERYTHEMA [None]
  - GRAFT VERSUS HOST DISEASE [None]
  - HYPERGLYCAEMIA [None]
  - HYPERTENSION [None]
  - MICROANGIOPATHY [None]
  - PULMONARY OEDEMA [None]
  - STAPHYLOCOCCAL INFECTION [None]
  - STAPHYLOCOCCAL SEPSIS [None]
  - SUBDURAL HAEMATOMA [None]
